FAERS Safety Report 22286835 (Version 1)
Quarter: 2023Q2

REPORT INFORMATION
  Report Type: Spontaneous
  Country: ES (occurrence: ES)
  Receive Date: 20230505
  Receipt Date: 20230505
  Transmission Date: 20230721
  Serious: Yes (Other)
  Sender: FDA-Public Use
  Company Number: ES-AEMPS-1359473

PATIENT
  Age: 59 Year
  Sex: Male

DRUGS (5)
  1. MEROPENEM [Suspect]
     Active Substance: MEROPENEM
     Indication: Pneumonia
     Dosage: 1 DOSAGE FORM
     Route: 042
     Dates: start: 20230210, end: 20230217
  2. PIPERACILLIN SODIUM\TAZOBACTAM SODIUM [Suspect]
     Active Substance: PIPERACILLIN SODIUM\TAZOBACTAM SODIUM
     Indication: Pneumonia
     Dosage: 1 DOSAGE FORM
     Route: 042
     Dates: start: 20230129, end: 20230210
  3. CIPROFLOXACIN [Concomitant]
     Active Substance: CIPROFLOXACIN
     Indication: Pneumonia
     Dosage: 1 DOSAGE FORM
     Route: 042
     Dates: start: 20230210
  4. AMOXICILLIN\CLAVULANIC ACID [Concomitant]
     Active Substance: AMOXICILLIN\CLAVULANIC ACID
     Indication: Prophylaxis
     Dosage: 1 DOSAGE FORM
     Route: 042
     Dates: start: 20230128, end: 20230129
  5. VANCOMYCIN [Concomitant]
     Active Substance: VANCOMYCIN
     Indication: Pneumonia
     Dosage: 1 DOSAGE FORM
     Route: 042
     Dates: start: 20230204, end: 20230214

REACTIONS (1)
  - Eosinophilic pneumonia [Recovered/Resolved]

NARRATIVE: CASE EVENT DATE: 20230210
